FAERS Safety Report 6277854-X (Version None)
Quarter: 2009Q3

REPORT INFORMATION
  Report Type: 
  Country: None (occurrence: None)
  Receive Date: 20090717
  Receipt Date: 20090717
  Transmission Date: 20100115
  Serious: Yes (Death)
  Sender: FDA-Public Use
  Company Number: None

PATIENT
  Age: 33 Year
  Sex: Male
  Weight: 113.3993 kg

DRUGS (1)
  1. PIROXICAM [Suspect]
     Indication: SCIATICA

REACTIONS (2)
  - ACUTE HEPATIC FAILURE [None]
  - JAUNDICE [None]
